FAERS Safety Report 5939639-0 (Version None)
Quarter: 2008Q4

REPORT INFORMATION
  Report Type: 
  Country: None (occurrence: None)
  Receive Date: 20081030
  Receipt Date: 20081030
  Transmission Date: 20090506
  Serious: No
  Sender: FDA-Public Use
  Company Number: None

PATIENT
  Age: 36 Year
  Sex: Male
  Weight: 81.6475 kg

DRUGS (1)
  1. CHANTIX [Suspect]
     Indication: SMOKING CESSATION THERAPY
     Dosage: PO
     Route: 048
     Dates: start: 20080108, end: 20080308

REACTIONS (5)
  - ACTIVITIES OF DAILY LIVING IMPAIRED [None]
  - APPETITE DISORDER [None]
  - EUPHORIC MOOD [None]
  - MENTAL DISORDER [None]
  - MYALGIA [None]
